FAERS Safety Report 17769176 (Version 3)
Quarter: 2020Q2

REPORT INFORMATION
  Report Type: Report from Study
  Country: MX (occurrence: MX)
  Receive Date: 20200512
  Receipt Date: 20200623
  Transmission Date: 20200714
  Serious: Yes (Other)
  Sender: FDA-Public Use
  Company Number: MX-UCBSA-2020018286

PATIENT
  Sex: Male
  Weight: 70 kg

DRUGS (3)
  1. KRIADEX [Concomitant]
     Indication: EPILEPSY
     Dosage: 2 DROP, 2X/DAY (BID)
  2. EPIVAL [Concomitant]
     Active Substance: DIVALPROEX SODIUM
     Indication: PRODUCT USED FOR UNKNOWN INDICATION
     Dosage: 500 MILLIGRAM, 2X/DAY (BID)
     Dates: start: 201911
  3. LEVETIRACETAM. [Suspect]
     Active Substance: LEVETIRACETAM
     Indication: EPILEPSY
     Dosage: 1000MG STRENGTH
     Dates: start: 2017, end: 2018

REACTIONS (6)
  - Depression [Not Recovered/Not Resolved]
  - Drug ineffective [Unknown]
  - Nasal septum deviation [Unknown]
  - Stress [Not Recovered/Not Resolved]
  - Anxiety [Not Recovered/Not Resolved]
  - Treatment noncompliance [Unknown]

NARRATIVE: CASE EVENT DATE: 2018
